FAERS Safety Report 8077624-6 (Version None)
Quarter: 2012Q1

REPORT INFORMATION
  Report Type: 
  Country: None (occurrence: None)
  Receive Date: 20120127
  Receipt Date: 20120119
  Transmission Date: 20120608
  Serious: Yes (Death)
  Sender: FDA-Public Use
  Company Number: US-CELGENEUS-163-21880-12012037

PATIENT
  Age: 64 Year
  Sex: Male

DRUGS (8)
  1. LORAZEPAM [Concomitant]
     Route: 065
  2. FLUOXETINE [Concomitant]
     Route: 065
  3. SIMVASTATIN [Concomitant]
     Route: 065
  4. REVLIMID [Suspect]
     Dosage: 10 MILLIGRAM
     Route: 048
     Dates: start: 20110201, end: 20110301
  5. AMLODIPINE [Concomitant]
     Route: 065
  6. ALLOPURINOL [Concomitant]
     Route: 065
  7. FUROSEMIDE [Concomitant]
     Route: 065
  8. ACYCLOVIR [Concomitant]
     Route: 065

REACTIONS (2)
  - NO THERAPEUTIC RESPONSE [None]
  - CHRONIC LYMPHOCYTIC LEUKAEMIA [None]
